FAERS Safety Report 14122545 (Version 1)
Quarter: 2017Q4

REPORT INFORMATION
  Report Type: Spontaneous
  Country: US (occurrence: US)
  Receive Date: 20171024
  Receipt Date: 20171024
  Transmission Date: 20180321
  Serious: No
  Sender: FDA-Public Use
  Company Number: US-ACTELION-A-US2017-161379

PATIENT

DRUGS (1)
  1. VENTAVIS [Suspect]
     Active Substance: ILOPROST
     Indication: OCCUPATIONAL EXPOSURE TO PRODUCT
     Route: 055

REACTIONS (2)
  - Occupational exposure to product [Unknown]
  - Headache [Unknown]
